FAERS Safety Report 8956221 (Version 1)
Quarter: 2012Q4

REPORT INFORMATION
  Report Type: 
  Country: GB (occurrence: GB)
  Receive Date: 20121210
  Receipt Date: 20121210
  Transmission Date: 20130627
  Serious: Yes (Disabling)
  Sender: FDA-Public Use
  Company Number: PHHY2012GB112024

PATIENT

DRUGS (9)
  1. SERTRALINE HYDROCHLORIDE [Suspect]
     Indication: ANXIETY
     Dosage: 50 mg/day
     Route: 048
     Dates: start: 2008, end: 20121005
  2. SERTRALINE HYDROCHLORIDE [Suspect]
     Indication: DEPRESSION
  3. RISPERIDONE [Concomitant]
     Indication: MAJOR DEPRESSION
     Dosage: 40 mg, UNK
     Route: 048
     Dates: start: 200701
  4. PIPAMPERONE [Concomitant]
     Indication: MAJOR DEPRESSION
     Dosage: 40 mg, UNK
     Route: 048
     Dates: start: 200701
  5. VENLAFAXINE [Concomitant]
     Indication: MAJOR DEPRESSION
     Dosage: 40 mg, UNK
     Route: 048
     Dates: start: 200701
  6. MIRTAZAPINE [Concomitant]
     Indication: MAJOR DEPRESSION
     Dosage: 40 mg, UNK
     Route: 048
     Dates: start: 200701
  7. PROMAZIN//PROMETHAZINE [Concomitant]
     Dosage: 25 mg, UNK
     Route: 048
     Dates: start: 2009, end: 2010
  8. LEVOTHYROXINE [Concomitant]
  9. DEPO-PROVERA [Concomitant]

REACTIONS (1)
  - Tic [Not Recovered/Not Resolved]
